FAERS Safety Report 21081702 (Version 1)
Quarter: 2022Q3

REPORT INFORMATION
  Report Type: Spontaneous
  Country: GB (occurrence: None)
  Receive Date: 20220714
  Receipt Date: 20220714
  Transmission Date: 20221026
  Serious: Yes (Disabling)
  Sender: FDA-Public Use
  Company Number: None

PATIENT
  Age: 48 Year
  Sex: Male
  Weight: 76.5 kg

DRUGS (1)
  1. MIRTAZAPINE [Suspect]
     Active Substance: MIRTAZAPINE
     Indication: Depression
     Dosage: OTHER QUANTITY : 15 ML;?FREQUENCY : AT BEDTIME;?
     Route: 048
     Dates: start: 20201001

REACTIONS (10)
  - Food interaction [None]
  - Arthralgia [None]
  - Myalgia [None]
  - Anxiety [None]
  - Syncope [None]
  - Suicidal behaviour [None]
  - Impaired work ability [None]
  - Dizziness [None]
  - Crohn^s disease [None]
  - Type 2 diabetes mellitus [None]

NARRATIVE: CASE EVENT DATE: 20220105
